FAERS Safety Report 12831083 (Version 1)
Quarter: 2016Q4

REPORT INFORMATION
  Report Type: Spontaneous
  Country: FR (occurrence: FR)
  Receive Date: 20161007
  Receipt Date: 20161007
  Transmission Date: 20170207
  Serious: Yes (Hospitalization, Other)
  Sender: FDA-Public Use
  Company Number: FR-ALLERGAN-1671136US

PATIENT
  Age: 63 Year
  Sex: Female

DRUGS (15)
  1. TERCIAN [Concomitant]
     Active Substance: CYAMEMAZINE
     Indication: PRODUCT USED FOR UNKNOWN INDICATION
  2. MOPRAL [Concomitant]
     Active Substance: OMEPRAZOLE SODIUM
     Indication: PRODUCT USED FOR UNKNOWN INDICATION
  3. SKENAN [Suspect]
     Active Substance: MORPHINE SULFATE
     Dosage: 40 MG, QD
     Dates: start: 20160830
  4. SKENAN [Suspect]
     Active Substance: MORPHINE SULFATE
     Indication: PAIN
     Dosage: 60 MG, QD
     Dates: start: 20160812
  5. ACTISKENAN [Suspect]
     Active Substance: MORPHINE SULFATE
     Indication: PAIN
     Dosage: UNK
     Dates: start: 20160805
  6. SERESTA [Concomitant]
     Active Substance: OXAZEPAM
     Indication: PRODUCT USED FOR UNKNOWN INDICATION
  7. NEULASTA [Concomitant]
     Active Substance: PEGFILGRASTIM
     Indication: PRODUCT USED FOR UNKNOWN INDICATION
  8. MOTILIUM [Concomitant]
     Active Substance: DOMPERIDONE
     Indication: PRODUCT USED FOR UNKNOWN INDICATION
  9. METEOSPASMYL [Concomitant]
     Active Substance: ALVERINE CITRATE\DIMETHICONE
     Indication: PRODUCT USED FOR UNKNOWN INDICATION
  10. ACTISKENAN [Suspect]
     Active Substance: MORPHINE SULFATE
     Dosage: 30 MG, QD
     Dates: end: 20160831
  11. CHLORAMINOPHENE [Concomitant]
     Active Substance: CHLORAMBUCIL
     Indication: PRODUCT USED FOR UNKNOWN INDICATION
  12. DIFFU K [Concomitant]
     Active Substance: POTASSIUM CHLORIDE
     Indication: PRODUCT USED FOR UNKNOWN INDICATION
  13. MILNACIPRAN UNK [Suspect]
     Active Substance: MILNACIPRAN
     Indication: DEPRESSION
     Dosage: 50 MG, FIVE TIMES A DAY
     Route: 048
     Dates: end: 20160906
  14. SOLUPRED [Concomitant]
     Active Substance: PREDNISOLONE
     Indication: PRODUCT USED FOR UNKNOWN INDICATION
  15. DAFLON [Concomitant]
     Active Substance: DIOSMIN\HESPERIDIN
     Indication: PRODUCT USED FOR UNKNOWN INDICATION

REACTIONS (12)
  - Confusional state [Recovering/Resolving]
  - Gamma-glutamyltransferase increased [Recovering/Resolving]
  - Inflammation [Recovering/Resolving]
  - Bronchitis [Recovering/Resolving]
  - Cholangitis [Recovering/Resolving]
  - Tachycardia [Recovering/Resolving]
  - Abnormal behaviour [Recovering/Resolving]
  - Pancytopenia [Not Recovered/Not Resolved]
  - Hyperhidrosis [Recovering/Resolving]
  - Pyrexia [Recovered/Resolved]
  - Encephalopathy [Recovering/Resolving]
  - Hypotension [Recovering/Resolving]

NARRATIVE: CASE EVENT DATE: 20160805
